FAERS Safety Report 12140870 (Version 1)
Quarter: 2016Q1

REPORT INFORMATION
  Report Type: Spontaneous
  Country: US (occurrence: None)
  Receive Date: 20160302
  Receipt Date: 20160302
  Transmission Date: 20160526
  Serious: Yes (Life-Threatening, Hospitalization)
  Sender: FDA-Public Use
  Company Number: None

PATIENT
  Age: 66 Year
  Sex: Male
  Weight: 99.3 kg

DRUGS (12)
  1. SOVALDI [Suspect]
     Active Substance: SOFOSBUVIR
     Indication: CHRONIC HEPATITIS C
     Route: 048
     Dates: start: 20150908, end: 20151201
  2. MULTIVITAMIN [Concomitant]
     Active Substance: VITAMINS
  3. CALCIUM [Concomitant]
     Active Substance: CALCIUM
  4. KETOCONAZOLE. [Concomitant]
     Active Substance: KETOCONAZOLE
  5. RIBAVIRIN. [Suspect]
     Active Substance: RIBAVIRIN
     Indication: CHRONIC HEPATITIS C
     Dosage: 3 CAPSULES 3CAP QAM + 2CAP PM ORAL
     Route: 048
     Dates: start: 20150908, end: 20151201
  6. ASCORBIC ACID. [Concomitant]
     Active Substance: ASCORBIC ACID
  7. HYDROCHLOROTHIAZIDE. [Concomitant]
     Active Substance: HYDROCHLOROTHIAZIDE
  8. TRAMADOL. [Concomitant]
     Active Substance: TRAMADOL
  9. LEVOTHYROXINE. [Concomitant]
     Active Substance: LEVOTHYROXINE
  10. VITAMIN B COMPLEX [Concomitant]
     Active Substance: CYANOCOBALAMIN\DEXPANTHENOL\NIACINAMIDE\PYRIDOXINE HYDROCHLORIDE\RIBOFLAVIN 5^-PHOSPHATE SODIUM\THIAMINE HYDROCHLORIDE\VITAMIN B COMPLEX
  11. BACITRACIN. [Concomitant]
     Active Substance: BACITRACIN
  12. FOLIC ACID. [Concomitant]
     Active Substance: FOLIC ACID

REACTIONS (7)
  - Electrocardiogram T wave abnormal [None]
  - Coronary artery disease [None]
  - Dyspnoea [None]
  - Chest discomfort [None]
  - Retinal artery occlusion [None]
  - Cerebrovascular accident [None]
  - Visual field defect [None]

NARRATIVE: CASE EVENT DATE: 20160111
